FAERS Safety Report 6792826-4 (Version None)
Quarter: 2010Q2

REPORT INFORMATION
  Report Type: 
  Country: None (occurrence: None)
  Receive Date: 20100624
  Receipt Date: 20081003
  Transmission Date: 20101027
  Serious: No
  Sender: FDA-Public Use
  Company Number: US-PFIZER INC-2008083446

PATIENT
  Sex: Female
  Weight: 45.5 kg

DRUGS (4)
  1. GEODON [Suspect]
     Indication: MANIA
     Route: 048
     Dates: start: 20071209, end: 20080901
  2. DEXTROAMPHETAMINE SULFATE [Concomitant]
  3. CYMBALTA [Concomitant]
  4. KLONOPIN [Concomitant]

REACTIONS (6)
  - DRUG INTOLERANCE [None]
  - EUPHORIC MOOD [None]
  - FATIGUE [None]
  - HYPOAESTHESIA [None]
  - SLEEP DISORDER [None]
  - SOMNOLENCE [None]
